FAERS Safety Report 8621363-7 (Version None)
Quarter: 2012Q3

REPORT INFORMATION
  Report Type: 
  Country: None (occurrence: None)
  Receive Date: 20120824
  Receipt Date: 20120817
  Transmission Date: 20120928
  Serious: Yes (Other)
  Sender: FDA-Public Use
  Company Number: ES-ABBOTT-12P-144-0970314-01

PATIENT
  Age: 29 Year
  Sex: Male

DRUGS (4)
  1. HUMIRA [Suspect]
     Route: 058
  2. AZATHIOPRINE SODIUM [Concomitant]
     Indication: ROUTINE HEALTH MAINTENANCE
     Dates: start: 20060525
  3. HUMIRA [Suspect]
     Route: 058
     Dates: end: 20100125
  4. HUMIRA [Suspect]
     Indication: CROHN'S DISEASE
     Route: 058
     Dates: start: 20090611, end: 20090611

REACTIONS (1)
  - COLECTOMY [None]
